FAERS Safety Report 10904018 (Version 4)
Quarter: 2019Q4

REPORT INFORMATION
  Report Type: Spontaneous
  Country: FR (occurrence: FR)
  Receive Date: 20150311
  Receipt Date: 20191024
  Transmission Date: 20200122
  Serious: Yes (Hospitalization, Other)
  Sender: FDA-Public Use
  Company Number: FR-RANBAXY-2015RR-93666

PATIENT
  Age: 25 Day
  Sex: Male

DRUGS (5)
  1. LEVETIRACETAM. [Suspect]
     Active Substance: LEVETIRACETAM
     Dosage: 3000 MILLIGRAM, DAILY, MATERNAL DOSE
     Route: 064
  2. TOPIRAMATE. [Suspect]
     Active Substance: TOPIRAMATE
     Indication: FOETAL EXPOSURE DURING PREGNANCY
     Dosage: MATERNAL DOSE: 200 MG QD
     Route: 063
  3. LEVETIRACETAM. [Suspect]
     Active Substance: LEVETIRACETAM
     Indication: FOETAL EXPOSURE DURING PREGNANCY
     Dosage: 3000 MG, DAILY MATERNAL DOSE
     Route: 063
  4. TOPIRAMATE. [Suspect]
     Active Substance: TOPIRAMATE
     Dosage: MATERNAL DOSE: 200 MG QD
     Route: 064
  5. CLOBAZAM. [Concomitant]
     Active Substance: CLOBAZAM
     Indication: PRODUCT USED FOR UNKNOWN INDICATION
     Dosage: UNKNOWN DOSE ()
     Route: 048

REACTIONS (5)
  - Foetal exposure during pregnancy [Unknown]
  - Vomiting [Recovering/Resolving]
  - Weight decreased [Recovering/Resolving]
  - Exposure via breast milk [Recovered/Resolved]
  - Sedation [Recovering/Resolving]
